FAERS Safety Report 25787327 (Version 2)
Quarter: 2025Q4

REPORT INFORMATION
  Report Type: Spontaneous
  Country: JP (occurrence: JP)
  Receive Date: 20250910
  Receipt Date: 20251201
  Transmission Date: 20260118
  Serious: Yes (Death, Disabling)
  Sender: MERCK SHARP & DOHME LLC
  Company Number: JP-009507513-2327342

PATIENT
  Age: 59 Year
  Sex: Female

DRUGS (1)
  1. KEYTRUDA [Suspect]
     Active Substance: PEMBROLIZUMAB
     Indication: Cervix carcinoma
     Route: 041

REACTIONS (4)
  - Death [Fatal]
  - Pyrexia [Unknown]
  - Memory impairment [Unknown]
  - Condition aggravated [Unknown]

NARRATIVE: CASE EVENT DATE: 20250801
